FAERS Safety Report 4578574-X (Version None)
Quarter: 2005Q1

REPORT INFORMATION
  Report Type: 
  Country: None (occurrence: None)
  Receive Date: 20050207
  Receipt Date: 20050207
  Transmission Date: 20050727
  Serious: Yes (Life-Threatening)
  Sender: FDA-Public Use
  Company Number: None

PATIENT
  Sex: Male
  Weight: 76.2043 kg

DRUGS (12)
  1. FLUOROURACIL [Suspect]
     Indication: ANAL CANCER
     Dosage: 2000MG X 4 DAYS (CI) IV
     Route: 042
     Dates: start: 20050111, end: 20050115
  2. MITOMYCIN [Suspect]
     Dosage: 20 MG IVP
     Route: 042
     Dates: start: 20050111
  3. RADIATION THERAPY [Concomitant]
  4. PRILOSEC [Concomitant]
  5. LORTAB [Concomitant]
  6. SINEQUAN [Concomitant]
  7. ELOCON [Concomitant]
  8. RHINOFLEX [Concomitant]
  9. LEVAQUIN [Concomitant]
  10. XYLOCAINE VISCOUS [Concomitant]
  11. ALUMINUM HYDROXIDE AND MAGNESIUM TRISILICATE [Concomitant]
  12. BENADRYL [Concomitant]

REACTIONS (1)
  - DRUG TOXICITY [None]
